FAERS Safety Report 4985964-X (Version None)
Quarter: 2006Q2

REPORT INFORMATION
  Report Type: 
  Country: None (occurrence: None)
  Receive Date: 20060428
  Receipt Date: 20060321
  Transmission Date: 20061013
  Serious: Yes (Disabling, Other)
  Sender: FDA-Public Use
  Company Number: DE-AVENTIS-200610798DE

PATIENT
  Age: 61 Year
  Sex: Female
  Weight: 66 kg

DRUGS (7)
  1. ARAVA [Suspect]
     Indication: RHEUMATOID ARTHRITIS
     Route: 048
     Dates: start: 20050711, end: 20060314
  2. PREDNISON [Concomitant]
     Route: 048
  3. CALCIMAGON [Concomitant]
     Route: 048
  4. ENAHEXAL [Concomitant]
     Route: 048
  5. BISOPROLOL [Concomitant]
     Route: 048
  6. NEXIUM [Concomitant]
     Route: 048
  7. OXYGESIC [Concomitant]

REACTIONS (1)
  - NEPHRITIS INTERSTITIAL [None]
